FAERS Safety Report 5160840-0 (Version None)
Quarter: 2006Q4

REPORT INFORMATION
  Report Type: 
  Country: None (occurrence: None)
  Receive Date: 20061121
  Receipt Date: 20061109
  Transmission Date: 20070319
  Serious: Yes (Death, Hospitalization)
  Sender: FDA-Public Use
  Company Number: 2006JP001914

PATIENT
  Age: 55 Year
  Sex: Male
  Weight: 44 kg

DRUGS (13)
  1. FUGUARD(MICAFUNGIN) INJECTION [Suspect]
     Indication: BRONCHOPULMONARY ASPERGILLOSIS
     Dosage: SEE IMAGE
     Route: 041
     Dates: start: 20060625, end: 20060626
  2. FUGUARD(MICAFUNGIN) INJECTION [Suspect]
     Indication: BRONCHOPULMONARY ASPERGILLOSIS
     Dosage: SEE IMAGE
     Route: 041
     Dates: start: 20051027
  3. LASIX [Concomitant]
  4. LASIX (FUROSEMIDE) INJECTION [Concomitant]
  5. ALDACTONE-A TABLET [Concomitant]
  6. SOLDACTONE (POTASSIUM CANRENOATE) INJECTION [Concomitant]
  7. AMARYL [Concomitant]
  8. GASTER D  ORODISPERSABLE CR TABLET [Concomitant]
  9. LIVACT (AMINO ACIDS NOS) GRANULE [Concomitant]
  10. URSO (URSODEOXYCHOLIC ACID) TABLET [Concomitant]
  11. SELBEX (TEPRENONE) GRANULE [Concomitant]
  12. AMINOLEBAN (AMINO ACIDS NOS) INJECTION [Concomitant]
  13. BASEN (VOGLIBOSE) [Concomitant]

REACTIONS (35)
  - AORTIC ARTERIOSCLEROSIS [None]
  - ARTERIOSCLEROSIS CORONARY ARTERY [None]
  - BRAIN ABSCESS [None]
  - CARDIAC ARREST [None]
  - CEREBRAL ARTERIOSCLEROSIS [None]
  - CHOLELITHIASIS [None]
  - COLON ADENOMA [None]
  - CONDITION AGGRAVATED [None]
  - DEPRESSED LEVEL OF CONSCIOUSNESS [None]
  - DISEASE PROGRESSION [None]
  - DISSEMINATED INTRAVASCULAR COAGULATION [None]
  - DYSPHORIA [None]
  - FIBROMA [None]
  - HEART RATE INCREASED [None]
  - HEPATIC FAILURE [None]
  - HEPATIC NECROSIS [None]
  - HEPATIC NEOPLASM MALIGNANT [None]
  - HEPATITIS B VIRUS [None]
  - LIVER ABSCESS [None]
  - MULTI-ORGAN FAILURE [None]
  - NAUSEA [None]
  - PCO2 DECREASED [None]
  - PLEURAL EFFUSION [None]
  - PULMONARY NECROSIS [None]
  - RENAL ABSCESS [None]
  - RENAL ARTERIOSCLEROSIS [None]
  - RENAL NECROSIS [None]
  - RENAL NEOPLASM [None]
  - SEPSIS [None]
  - SHOCK [None]
  - SPLENIC ABSCESS [None]
  - SPLENOMEGALY [None]
  - THERAPY NON-RESPONDER [None]
  - UPPER GASTROINTESTINAL HAEMORRHAGE [None]
  - VARICES OESOPHAGEAL [None]
